FAERS Safety Report 4389603-0 (Version None)
Quarter: 2004Q3

REPORT INFORMATION
  Report Type: 
  Country: None (occurrence: None)
  Receive Date: 20040702
  Receipt Date: 20040629
  Transmission Date: 20050211
  Serious: Yes (Life-Threatening, Hospitalization, Disabling)
  Sender: FDA-Public Use
  Company Number: US-MERCK-0406USA02718

PATIENT
  Age: 69 Year
  Sex: Female

DRUGS (5)
  1. VASERETIC [Concomitant]
     Route: 065
  2. ZETIA [Suspect]
     Indication: BLOOD CHOLESTEROL INCREASED
     Route: 048
     Dates: start: 20030901, end: 20040401
  3. SYNTHROID [Concomitant]
     Route: 065
  4. LOPRESSOR [Concomitant]
     Route: 065
  5. PRILOSEC [Concomitant]
     Route: 065

REACTIONS (4)
  - BLOOD MAGNESIUM DECREASED [None]
  - BLOOD POTASSIUM DECREASED [None]
  - HEART RATE IRREGULAR [None]
  - MUSCLE FATIGUE [None]
